FAERS Safety Report 4801367-2 (Version None)
Quarter: 2005Q4

REPORT INFORMATION
  Report Type: 
  Country: None (occurrence: None)
  Receive Date: 20051012
  Receipt Date: 20050929
  Transmission Date: 20060501
  Serious: Yes (Other)
  Sender: FDA-Public Use
  Company Number: 2005-10-0228

PATIENT
  Age: 76 Year
  Sex: Male

DRUGS (2)
  1. FLUTAMIDE [Suspect]
     Dosage: ORAL
     Route: 048
  2. FLUTAMIDE [Suspect]

REACTIONS (6)
  - COUGH [None]
  - DYSPNOEA [None]
  - GENERAL PHYSICAL HEALTH DETERIORATION [None]
  - LUNG DISORDER [None]
  - LUNG INFILTRATION [None]
  - PYREXIA [None]
